FAERS Safety Report 6700037-3 (Version None)
Quarter: 2010Q2

REPORT INFORMATION
  Report Type: 
  Country: None (occurrence: None)
  Receive Date: 20100428
  Receipt Date: 20100420
  Transmission Date: 20101027
  Serious: Yes (Other)
  Sender: FDA-Public Use
  Company Number: IE-BRISTOL-MYERS SQUIBB COMPANY-14755250

PATIENT
  Age: 20 Year
  Sex: Female
  Weight: 66 kg

DRUGS (4)
  1. REYATAZ [Suspect]
     Indication: HIV INFECTION
     Dosage: 300MG FROM 25JUN09-14AUG09, 600MG 14-AUG-2009 TO 28-AUG-2009 400MG 28AUG09-4SEP09.
     Route: 048
     Dates: start: 20090625, end: 20090814
  2. TRUVADA [Suspect]
     Indication: HIV INFECTION
     Dosage: 1 DF - 1 TABS
     Route: 048
     Dates: start: 20090625, end: 20090904
  3. RITONAVIR [Suspect]
     Indication: HIV INFECTION
     Route: 048
     Dates: start: 20090625, end: 20090904
  4. NEVIRAPINE [Suspect]
     Indication: HIV INFECTION
     Route: 048
     Dates: start: 20090904, end: 20090904

REACTIONS (3)
  - CAESAREAN SECTION [None]
  - NORMAL NEWBORN [None]
  - PREGNANCY [None]
